FAERS Safety Report 16349402 (Version 2)
Quarter: 2019Q2

REPORT INFORMATION
  Report Type: Spontaneous
  Country: BR (occurrence: BR)
  Receive Date: 20190523
  Receipt Date: 20190524
  Transmission Date: 20190711
  Serious: Yes (Hospitalization)
  Sender: FDA-Public Use
  Company Number: BR-CELGENEUS-BRA-20190503074

PATIENT
  Age: 59 Year
  Sex: Male

DRUGS (7)
  1. VIDAZA [Suspect]
     Active Substance: AZACITIDINE
     Route: 058
     Dates: start: 20190508
  2. PRIMROSE [Concomitant]
     Indication: SKIN LESION
     Dosage: 1 F
     Route: 065
  3. VANCOMYCIN [Concomitant]
     Active Substance: VANCOMYCIN
     Indication: PRODUCT USED FOR UNKNOWN INDICATION
     Route: 065
     Dates: start: 20190504, end: 20190513
  4. VIDAZA [Suspect]
     Active Substance: AZACITIDINE
     Indication: MYELODYSPLASTIC SYNDROME
     Route: 058
     Dates: start: 20181001
  5. MEROPENEM. [Concomitant]
     Active Substance: MEROPENEM
     Indication: PRODUCT USED FOR UNKNOWN INDICATION
     Route: 065
     Dates: start: 20190413, end: 20190513
  6. PROPHYLACTIC MICAFUNGIN [Concomitant]
     Indication: PRODUCT USED FOR UNKNOWN INDICATION
     Route: 065
     Dates: start: 20190413, end: 20190503
  7. PROPHYLACTIC MICAFUNGIN [Concomitant]
     Route: 065
     Dates: start: 20190503, end: 20190513

REACTIONS (6)
  - Gingival bleeding [Unknown]
  - Pyrexia [Unknown]
  - Skin lesion [Unknown]
  - Febrile neutropenia [Unknown]
  - Conjunctival haemorrhage [Unknown]
  - Eye haemorrhage [Unknown]

NARRATIVE: CASE EVENT DATE: 20190428
